FAERS Safety Report 9189643 (Version 1)
Quarter: 2013Q1

REPORT INFORMATION
  Report Type: Spontaneous
  Country: US (occurrence: US)
  Receive Date: 20130326
  Receipt Date: 20130326
  Transmission Date: 20140127
  Serious: No
  Sender: FDA-Public Use
  Company Number: US-MYLANLABS-2012S1008989

PATIENT
  Age: 46 Year
  Sex: Female
  Weight: 96.16 kg

DRUGS (8)
  1. FENTANYL TRANSDERMAL SYSTEM [Suspect]
     Indication: NECK PAIN
     Dosage: Q72H
     Route: 062
     Dates: start: 2010, end: 20120430
  2. LEVOTHYROXINE [Concomitant]
     Indication: HYPOTHYROIDISM
     Route: 048
  3. DILANTIN [Concomitant]
     Indication: CONVULSION
     Route: 048
  4. SIMVASTATIN [Concomitant]
     Indication: HYPERLIPIDAEMIA
     Route: 048
  5. GLUCOPHAGE [Concomitant]
     Indication: DIABETES MELLITUS
     Route: 048
  6. NEXIUM [Concomitant]
     Indication: GASTROOESOPHAGEAL REFLUX DISEASE
  7. PERCOCET [Concomitant]
     Indication: PAIN
  8. BENADRYL [Concomitant]
     Indication: URTICARIA

REACTIONS (2)
  - Urticaria [Recovering/Resolving]
  - Application site erythema [Not Recovered/Not Resolved]
